FAERS Safety Report 9072222 (Version 1)
Quarter: 2013Q1

REPORT INFORMATION
  Report Type: Spontaneous
  Country: US (occurrence: US)
  Receive Date: 20130206
  Receipt Date: 20130206
  Transmission Date: 20140127
  Serious: No
  Sender: FDA-Public Use
  Company Number: US-ALLERGAN-1216723US

PATIENT
  Age: 64 Year
  Sex: Female

DRUGS (2)
  1. RESTASIS? [Suspect]
     Indication: DRY EYE
     Dosage: 2 GTT, UNK
     Route: 047
     Dates: start: 20121105, end: 20121117
  2. ZANTAC                             /00550801/ [Concomitant]
     Indication: GASTROOESOPHAGEAL REFLUX DISEASE
     Dosage: UNK UNK, PRN
     Route: 048

REACTIONS (9)
  - Throat irritation [Recovering/Resolving]
  - Gingivitis [Recovering/Resolving]
  - Oral discomfort [Recovering/Resolving]
  - Oral discomfort [Recovering/Resolving]
  - Gastrooesophageal reflux disease [Recovering/Resolving]
  - Pruritus [Unknown]
  - Dry mouth [Unknown]
  - Vision blurred [Not Recovered/Not Resolved]
  - Mouth injury [Recovering/Resolving]
